FAERS Safety Report 10332811 (Version 3)
Quarter: 2014Q4

REPORT INFORMATION
  Report Type: Report from Study
  Country: US (occurrence: US)
  Receive Date: 20140722
  Receipt Date: 20141003
  Transmission Date: 20150528
  Serious: No
  Sender: FDA-Public Use
  Company Number: US-009507513-1407USA005315

PATIENT
  Age: 47 Year
  Sex: Male

DRUGS (5)
  1. PEMBROLIZUMAB. [Suspect]
     Active Substance: PEMBROLIZUMAB
     Dosage: STRENGTH: 2 MG/KG/DAY, 152 MG DAILY, Q3W
     Route: 042
     Dates: start: 20140611, end: 20140611
  2. PEMBROLIZUMAB. [Suspect]
     Active Substance: PEMBROLIZUMAB
     Dosage: STRENGTH: 2 MG/KG/DAY, 155 MG DAILY, Q3W
     Route: 042
     Dates: start: 20140723, end: 20140723
  3. PEMBROLIZUMAB. [Suspect]
     Active Substance: PEMBROLIZUMAB
     Indication: METASTATIC MALIGNANT MELANOMA
     Dosage: STRENGTH: 2 MG/KG/DAY, 156 MG DAILY, Q3W
     Route: 042
     Dates: start: 20140521, end: 20140521
  4. PEMBROLIZUMAB. [Suspect]
     Active Substance: PEMBROLIZUMAB
     Dosage: STRENGTH: 2 MG/KG/DAY, 157 MG DAILY, Q3W
     Route: 042
     Dates: start: 20140702, end: 20140702
  5. PEMBROLIZUMAB. [Suspect]
     Active Substance: PEMBROLIZUMAB
     Dosage: STRENGTH: 2 MG/KG/DAY, 156 MG DAILY, Q3W
     Route: 042
     Dates: start: 20140813, end: 20140813

REACTIONS (2)
  - Pneumonitis [Recovered/Resolved]
  - Pyrexia [Recovered/Resolved]

NARRATIVE: CASE EVENT DATE: 20140611
